FAERS Safety Report 18816432 (Version 1)
Quarter: 2021Q1

REPORT INFORMATION
  Report Type: Spontaneous
  Country: FI (occurrence: FI)
  Receive Date: 20210201
  Receipt Date: 20210201
  Transmission Date: 20210419
  Serious: Yes (Death, Hospitalization, Other)
  Sender: FDA-Public Use
  Company Number: FI-SA-2021SA019395

PATIENT
  Age: 70 Year
  Sex: Female

DRUGS (17)
  1. CARBAMAZEPINE. [Concomitant]
     Active Substance: CARBAMAZEPINE
     Dosage: 150 MG
     Dates: start: 20210113, end: 20210113
  2. LORAZEPAM. [Concomitant]
     Active Substance: LORAZEPAM
     Dosage: 8 MG, TOTAL
     Route: 042
     Dates: start: 20210113
  3. CEFTRIAXONE. [Concomitant]
     Active Substance: CEFTRIAXONE
  4. CAPLACIZUMAB [Suspect]
     Active Substance: CAPLACIZUMAB
     Indication: THROMBOTIC THROMBOCYTOPENIC PURPURA
     Dosage: 10 MG, QD
     Route: 058
     Dates: start: 20210114, end: 20210115
  5. METHYLPREDNISOLONE. [Concomitant]
     Active Substance: METHYLPREDNISOLONE
     Dosage: 500 MG
     Route: 042
     Dates: start: 20210114, end: 20210114
  6. METHYLPREDNISOLONE. [Concomitant]
     Active Substance: METHYLPREDNISOLONE
     Dosage: 60 MG, QD
     Route: 048
     Dates: start: 20210115, end: 20210115
  7. LORAZEPAM. [Concomitant]
     Active Substance: LORAZEPAM
  8. OCTAPLAS LG [Concomitant]
     Active Substance: HUMAN PLASMA
  9. CITRATE [Concomitant]
     Active Substance: CITRIC ACID MONOHYDRATE
     Dosage: 500 IU
     Route: 040
  10. CORTISONE [Concomitant]
     Active Substance: CORTISONE
     Dosage: UNK
     Dates: start: 20210114
  11. CARBAMAZEPINE. [Concomitant]
     Active Substance: CARBAMAZEPINE
     Dosage: 300 MG
     Dates: start: 20210113, end: 20210113
  12. ROSUVASTATIN. [Concomitant]
     Active Substance: ROSUVASTATIN
     Dosage: 10 MG
  13. DOXIMED [DOXYCYCLINE HYCLATE] [Concomitant]
  14. EPINEPHRINE. [Concomitant]
     Active Substance: EPINEPHRINE
  15. KEPPRA [Concomitant]
     Active Substance: LEVETIRACETAM
     Indication: EPILEPSY
  16. VIMPAT [Concomitant]
     Active Substance: LACOSAMIDE
     Indication: EPILEPSY
  17. ACYCLOVIR [ACICLOVIR] [Concomitant]
     Active Substance: ACYCLOVIR

REACTIONS (4)
  - Haemodynamic instability [Fatal]
  - Nervous system disorder [Fatal]
  - Condition aggravated [Fatal]
  - Cardiac arrest [Fatal]

NARRATIVE: CASE EVENT DATE: 20210115
